FAERS Safety Report 20113984 (Version 1)
Quarter: 2021Q4

REPORT INFORMATION
  Report Type: Spontaneous
  Country: CN (occurrence: CN)
  Receive Date: 20211125
  Receipt Date: 20211125
  Transmission Date: 20220303
  Serious: Yes (Other)
  Sender: FDA-Public Use
  Company Number: CN-VIIV HEALTHCARE ULC-CN2021APC239598

PATIENT
  Age: 57 Year
  Sex: Female
  Weight: 69 kg

DRUGS (2)
  1. DOLUTEGRAVIR SODIUM [Suspect]
     Active Substance: DOLUTEGRAVIR SODIUM
     Indication: Infection in an immunocompromised host
     Dosage: 50 MG, QD
     Route: 048
     Dates: start: 20211018, end: 20211119
  2. LAMIVUDINE [Concomitant]
     Active Substance: LAMIVUDINE
     Indication: Infection in an immunocompromised host
     Dosage: 0.3 G, QD
     Route: 048
     Dates: start: 20211018, end: 20211119

REACTIONS (1)
  - Exophthalmos [Recovering/Resolving]

NARRATIVE: CASE EVENT DATE: 20211019
